FAERS Safety Report 8445453-7 (Version None)
Quarter: 2012Q2

REPORT INFORMATION
  Report Type: 
  Country: None (occurrence: None)
  Receive Date: 20120611
  Receipt Date: 20120524
  Transmission Date: 20120825
  Serious: Yes (Hospitalization, Other)
  Sender: FDA-Public Use
  Company Number: INT_00081_2012

PATIENT
  Age: 47 Year
  Sex: Female

DRUGS (2)
  1. AMPICILLIN AND SULBACTAM [Suspect]
     Indication: TOOTHACHE
     Dosage: (750 MG BID)
  2. LEVOTHYROXINE SODIUM [Concomitant]

REACTIONS (4)
  - ASTHENIA [None]
  - HEPATITIS TOXIC [None]
  - NAUSEA [None]
  - VOMITING [None]
